FAERS Safety Report 6691583-X (Version None)
Quarter: 2010Q2

REPORT INFORMATION
  Report Type: 
  Country: None (occurrence: None)
  Receive Date: 20100422
  Receipt Date: 20100412
  Transmission Date: 20101027
  Serious: No
  Sender: FDA-Public Use
  Company Number: US-JNJFOC-20100403462

PATIENT
  Sex: Female
  Weight: 54.89 kg

DRUGS (5)
  1. FENTANYL CITRATE [Suspect]
     Indication: BACK PAIN
     Dosage: NDC# 0781-7112-55
     Route: 062
  2. FENTANYL CITRATE [Suspect]
     Route: 062
  3. FENTANYL CITRATE [Suspect]
     Route: 062
  4. FENTANYL CITRATE [Suspect]
     Dosage: NDC# 0781-7114-55
     Route: 062
  5. NORCO [Concomitant]
     Indication: BREAKTHROUGH PAIN
     Route: 048

REACTIONS (9)
  - APPLICATION SITE EROSION [None]
  - APPLICATION SITE ERYTHEMA [None]
  - DYSKINESIA [None]
  - FEELING ABNORMAL [None]
  - HYPERHIDROSIS [None]
  - PALPITATIONS [None]
  - PRODUCT ADHESION ISSUE [None]
  - TREATMENT NONCOMPLIANCE [None]
  - VOMITING [None]
